FAERS Safety Report 14272053 (Version 1)
Quarter: 2017Q4

REPORT INFORMATION
  Report Type: Spontaneous
  Country: SE (occurrence: SE)
  Receive Date: 20171212
  Receipt Date: 20171212
  Transmission Date: 20180321
  Serious: Yes (Hospitalization, Other)
  Sender: FDA-Public Use
  Company Number: SE-ASTRAZENECA-2017SF23704

PATIENT
  Age: 86 Year
  Sex: Female

DRUGS (16)
  1. ESOMEPRAZOLE [Suspect]
     Active Substance: ESOMEPRAZOLE
     Indication: GASTRIC ULCER
     Route: 048
     Dates: start: 20171005, end: 20171115
  2. AMLODIPINE [Concomitant]
     Active Substance: AMLODIPINE BESYLATE
  3. KALCIPOS-D [Concomitant]
     Active Substance: CALCIUM CARBONATE\CHOLECALCIFEROL
  4. KALEORID [Concomitant]
     Active Substance: POTASSIUM CHLORIDE
  5. XERODENT [Concomitant]
  6. MOVICOL [Concomitant]
     Active Substance: POLYETHYLENE GLYCOL 3350\POTASSIUM CHLORIDE\SODIUM BICARBONATE\SODIUM CHLORIDE
  7. LASIX [Concomitant]
     Active Substance: FUROSEMIDE
  8. EUSAPRIM FORTE [Concomitant]
     Active Substance: SULFAMETHOXAZOLE\TRIMETHOPRIM
  9. IMOVANE [Concomitant]
     Active Substance: ZOPICLONE
  10. LEVAXIN [Concomitant]
     Active Substance: LEVOTHYROXINE SODIUM
  11. EMGESAN [Concomitant]
  12. OXASCAND [Concomitant]
     Active Substance: OXAZEPAM
  13. SPIRIVA RESPIMAT [Concomitant]
     Active Substance: TIOTROPIUM BROMIDE
  14. OFTAGEL [Concomitant]
     Active Substance: CARBOMER
  15. OMEPRAZOL PENSA [Concomitant]
     Active Substance: OMEPRAZOLE MAGNESIUM
  16. ALVEDON [Concomitant]
     Active Substance: ACETAMINOPHEN

REACTIONS (2)
  - Magnesium metabolism disorder [Recovered/Resolved]
  - Calcium metabolism disorder [Recovered/Resolved]

NARRATIVE: CASE EVENT DATE: 20171115
